FAERS Safety Report 16567228 (Version 7)
Quarter: 2019Q3

REPORT INFORMATION
  Report Type: Spontaneous
  Country: JP (occurrence: JP)
  Receive Date: 20190712
  Receipt Date: 20190911
  Transmission Date: 20191004
  Serious: Yes (Other)
  Sender: FDA-Public Use
  Company Number: JP-BAUSCH-BL-2019-020103

PATIENT
  Age: 70 Year
  Sex: Male

DRUGS (2)
  1. LUMICEF [Suspect]
     Active Substance: BRODALUMAB
     Indication: ERYTHRODERMIC PSORIASIS
     Dosage: SYRINGE
     Route: 058
     Dates: start: 20190516, end: 2019
  2. LUMICEF [Suspect]
     Active Substance: BRODALUMAB
     Dosage: SYRINGE; DISCONTINUED AFTER 5 DOSES
     Route: 058
     Dates: start: 2019, end: 20190627

REACTIONS (3)
  - Fungal infection [Unknown]
  - Herpes zoster [Unknown]
  - Pemphigus [Recovering/Resolving]

NARRATIVE: CASE EVENT DATE: 201906
